FAERS Safety Report 12189148 (Version 1)
Quarter: 2016Q1

REPORT INFORMATION
  Report Type: Spontaneous
  Country: US (occurrence: US)
  Receive Date: 20160317
  Receipt Date: 20160317
  Transmission Date: 20160526
  Serious: Yes (Other)
  Sender: FDA-Public Use
  Company Number: US-PURDUE PHARMA-USA-2016-0129647

PATIENT
  Sex: Male

DRUGS (2)
  1. HEROIN [Suspect]
     Active Substance: DIACETYLMORPHINE
     Indication: FOETAL EXPOSURE DURING PREGNANCY
     Route: 064
  2. OXYCONTIN [Suspect]
     Active Substance: OXYCODONE HYDROCHLORIDE
     Indication: FOETAL EXPOSURE DURING PREGNANCY
     Route: 064

REACTIONS (5)
  - Brain injury [Unknown]
  - Substance dependence [Unknown]
  - Autism [Unknown]
  - Foetal exposure during pregnancy [Recovered/Resolved]
  - Deafness [Unknown]
